FAERS Safety Report 15467303 (Version 1)
Quarter: 2018Q4

REPORT INFORMATION
  Report Type: Report from Study
  Country: GB (occurrence: GB)
  Receive Date: 20181005
  Receipt Date: 20181005
  Transmission Date: 20190204
  Serious: Yes (Other)
  Sender: FDA-Public Use
  Company Number: GB-TEVA-2018-GB-960572

PATIENT
  Sex: Female

DRUGS (2)
  1. COLESTYRAMINE [Concomitant]
     Active Substance: CHOLESTYRAMINE
  2. COPAXONE [Suspect]
     Active Substance: GLATIRAMER ACETATE
     Indication: MULTIPLE SCLEROSIS
     Route: 058
     Dates: start: 20180511

REACTIONS (9)
  - Chest discomfort [Unknown]
  - Paraesthesia [Unknown]
  - Swelling face [Unknown]
  - Hypotonia [Unknown]
  - Dyspnoea [Unknown]
  - Fall [Unknown]
  - Hyperhidrosis [Unknown]
  - Feeling of body temperature change [Unknown]
  - Asthenia [Unknown]
